FAERS Safety Report 6249351-9 (Version None)
Quarter: 2009Q2

REPORT INFORMATION
  Report Type: 
  Country: None (occurrence: None)
  Receive Date: 20090625
  Receipt Date: 20090625
  Transmission Date: 20091009
  Serious: No
  Sender: FDA-Public Use
  Company Number: None

PATIENT
  Age: 47 Year
  Sex: Male
  Weight: 77.1115 kg

DRUGS (2)
  1. ZICAM NO DRIP LIQUID NASAL GEL ZICAM LLC SCOTSDALE, AZ [Suspect]
     Indication: NASOPHARYNGITIS
     Dosage: -RECOMMENDED BY MANUFACTURER- -RECOM. BY MANUF.- NASAL
     Route: 045
     Dates: start: 20090110, end: 20090510
  2. ZICAM NO DRIP LIQUID NASAL GEL [Concomitant]

REACTIONS (5)
  - AGEUSIA [None]
  - ANOSMIA [None]
  - INSOMNIA [None]
  - NASAL CONGESTION [None]
  - RHINORRHOEA [None]
